FAERS Safety Report 26090590 (Version 1)
Quarter: 2025Q4

REPORT INFORMATION
  Report Type: Spontaneous
  Country: US (occurrence: US)
  Receive Date: 20251126
  Receipt Date: 20251126
  Transmission Date: 20260118
  Serious: Yes (Other)
  Sender: COOPERSURGICAL
  Company Number: US-COOPERSURGICAL, INC.-2025CPS008151

PATIENT
  Age: 31 Year
  Sex: Female
  Weight: 46.712 kg

DRUGS (1)
  1. PARAGARD T 380A [Suspect]
     Active Substance: COPPER
     Indication: Contraception
     Dosage: UNK
     Route: 015
     Dates: start: 20130424, end: 20150608

REACTIONS (8)
  - Reproductive complication associated with device [Recovered/Resolved]
  - Infertility [Recovered/Resolved]
  - Procedural pain [Recovered/Resolved]
  - Purulence [Unknown]
  - Vaginal infection [Unknown]
  - Pain [Recovered/Resolved]
  - Muscle spasms [Recovered/Resolved]
  - Endometritis [Unknown]

NARRATIVE: CASE EVENT DATE: 20130424
